FAERS Safety Report 6289449-2 (Version None)
Quarter: 2009Q3

REPORT INFORMATION
  Report Type: 
  Country: None (occurrence: None)
  Receive Date: 20090728
  Receipt Date: 20090728
  Transmission Date: 20100115
  Serious: Yes (Other)
  Sender: FDA-Public Use
  Company Number: None

PATIENT
  Age: 65 Year
  Sex: Female
  Weight: 95.2554 kg

DRUGS (1)
  1. COMMIT LOZENGES 4 MG. OR AVAILABLE IN 2 MG. [Suspect]
     Indication: SMOKING CESSATION THERAPY
     Dosage: ^NO MORE THAN 20 PER DAY^
     Dates: start: 20090401, end: 20090720

REACTIONS (10)
  - DISCOMFORT [None]
  - DRUG DEPENDENCE [None]
  - DYSPNOEA [None]
  - FLATULENCE [None]
  - FLUID RETENTION [None]
  - HEADACHE [None]
  - JOINT SWELLING [None]
  - OEDEMA PERIPHERAL [None]
  - PARAESTHESIA [None]
  - WEIGHT INCREASED [None]
